FAERS Safety Report 17683394 (Version 5)
Quarter: 2020Q3

REPORT INFORMATION
  Report Type: Spontaneous
  Country: US (occurrence: US)
  Receive Date: 20200420
  Receipt Date: 20200805
  Transmission Date: 20201102
  Serious: Yes (Life-Threatening, Hospitalization, Other)
  Sender: FDA-Public Use
  Company Number: US-AMGEN-USASP2020062312

PATIENT
  Age: 2 Year
  Sex: Male
  Weight: 12.6 kg

DRUGS (4)
  1. CISPLATIN. [Suspect]
     Active Substance: CISPLATIN
     Indication: NEUROBLASTOMA
     Dosage: 34 MILLIGRAM, QD (EVERY 24 HOURS AT 78 ML/HR OVER 4 HOURS ON DAYS 1 ? 3 OF ARM E INDUCTION CYCLE 3)
     Route: 042
     Dates: start: 20200310, end: 20200312
  2. NEULASTA [Suspect]
     Active Substance: PEGFILGRASTIM
     Indication: NEUROBLASTOMA
     Dosage: 1.3 MILLIGRAM, ONCE (24 HOURS AFTER COMPLETION OF LAST DOSE OF CHEMOTHERAPY ON ARM E INDUCTION CYCLE
     Route: 065
     Dates: start: 20200313, end: 20200313
  3. CRIZOTINIB [Suspect]
     Active Substance: CRIZOTINIB
     Indication: NEUROBLASTOMA
     Dosage: 120 MILLIGRAM, BID
     Route: 048
     Dates: start: 20200309, end: 20200323
  4. ETOPOSIDE. [Suspect]
     Active Substance: ETOPOSIDE
     Indication: NEUROBLASTOMA
     Dosage: 112 MILLIGRAM, QD (EVERY 24 HOURS AT 127.8 ML/HR OVER 2 HOURS ON DAYS 1 ? 3 OF ARM E INDUCTION CYCLE
     Route: 042
     Dates: start: 20200309, end: 20200311

REACTIONS (9)
  - Depressed level of consciousness [Recovered/Resolved]
  - Hypoxia [Unknown]
  - Hypokalaemia [Recovered/Resolved]
  - Bradypnoea [Unknown]
  - Febrile neutropenia [Unknown]
  - Dehydration [Unknown]
  - Hypotension [Unknown]
  - Clostridium difficile colitis [Recovering/Resolving]
  - Neutropenic sepsis [Unknown]

NARRATIVE: CASE EVENT DATE: 202003
